FAERS Safety Report 6496145-5 (Version None)
Quarter: 2009Q4

REPORT INFORMATION
  Report Type: 
  Country: None (occurrence: None)
  Receive Date: 20091214
  Receipt Date: 20091006
  Transmission Date: 20100525
  Serious: No
  Sender: FDA-Public Use
  Company Number: US-BRISTOL-MYERS SQUIBB COMPANY-14807465

PATIENT
  Age: 13 Year
  Sex: Male
  Weight: 61 kg

DRUGS (6)
  1. ABILIFY [Suspect]
     Indication: BIPOLAR DISORDER
     Dates: start: 20060925, end: 20061101
  2. ABILIFY [Suspect]
     Indication: ATTENTION DEFICIT/HYPERACTIVITY DISORDER
     Dates: start: 20060925, end: 20061101
  3. DEPAKOTE [Concomitant]
  4. RITALIN [Concomitant]
  5. SERTRALINE HCL [Concomitant]
  6. BENZODIAZEPINE [Concomitant]

REACTIONS (1)
  - HALLUCINATION, VISUAL [None]
